FAERS Safety Report 8396204-6 (Version None)
Quarter: 2012Q2

REPORT INFORMATION
  Report Type: 
  Country: None (occurrence: None)
  Receive Date: 20120530
  Receipt Date: 20120521
  Transmission Date: 20120825
  Serious: Yes (Hospitalization, Other)
  Sender: FDA-Public Use
  Company Number: JP-GLAXOSMITHKLINE-B0803871A

PATIENT
  Age: 90 Year
  Sex: Male

DRUGS (17)
  1. DUTASTERIDE [Suspect]
     Dosage: .5MG PER DAY
     Route: 048
     Dates: start: 20120327, end: 20120521
  2. TICLOPIDINE HCL [Suspect]
     Indication: PRODUCT USED FOR UNKNOWN INDICATION
     Dosage: 100MG PER DAY
     Route: 048
  3. ALLOPURINOL [Concomitant]
     Indication: HYPERURICAEMIA
     Dosage: 100MG PER DAY
     Route: 048
  4. LANSOPRAZOLE [Concomitant]
     Dosage: 15MG PER DAY
     Route: 048
  5. FUROSEMIDE [Concomitant]
     Dosage: 40MG PER DAY
     Route: 048
  6. AMOBAN [Concomitant]
     Dosage: 7.5MG PER DAY
     Route: 048
  7. PURSENNID [Concomitant]
     Dosage: 24MG PER DAY
     Route: 048
  8. TAMSULOSIN HCL [Concomitant]
     Dosage: .2MG PER DAY
     Route: 048
  9. WARFARIN SODIUM [Concomitant]
     Dosage: 2.5MG PER DAY
     Route: 048
  10. VERAPAMIL HCL [Concomitant]
     Dosage: 40MG PER DAY
     Route: 048
  11. LAXOBERON [Concomitant]
     Dosage: 2.5MG PER DAY
     Route: 048
  12. ZYRTEC [Concomitant]
     Indication: PRURITUS
     Dosage: 5MG PER DAY
     Route: 048
  13. MAGNESIUM OXIDE [Concomitant]
     Dosage: 1G PER DAY
     Route: 048
  14. DUTASTERIDE [Suspect]
     Indication: BENIGN PROSTATIC HYPERPLASIA
     Dosage: .5MG PER DAY
     Route: 048
     Dates: end: 20120215
  15. LEVOTHYROXINE SODIUM [Suspect]
     Indication: PRODUCT USED FOR UNKNOWN INDICATION
     Dosage: 50MCG PER DAY
     Route: 048
  16. BASEN [Concomitant]
     Dosage: .9MG PER DAY
     Route: 048
  17. BISOPROLOL FUMARATE [Concomitant]
     Dosage: 5MG PER DAY
     Route: 048

REACTIONS (2)
  - ALANINE AMINOTRANSFERASE INCREASED [None]
  - ASPARTATE AMINOTRANSFERASE INCREASED [None]
